FAERS Safety Report 13734508 (Version 1)
Quarter: 2017Q3

REPORT INFORMATION
  Report Type: Spontaneous
  Country: US (occurrence: US)
  Receive Date: 20170709
  Receipt Date: 20170709
  Transmission Date: 20171127
  Serious: No
  Sender: FDA-Public Use
  Company Number: US-009507513-1707USA000448

PATIENT
  Sex: Female

DRUGS (1)
  1. ZEPATIER [Suspect]
     Active Substance: ELBASVIR\GRAZOPREVIR
     Indication: HEPATITIS C
     Dosage: 1 TABLET (50-100 MG) BY MOUTH EVERY DAY
     Route: 048

REACTIONS (4)
  - Abdominal pain upper [Unknown]
  - Sleep apnoea syndrome [Unknown]
  - Gastroenteritis viral [Unknown]
  - Fatigue [Unknown]
